FAERS Safety Report 10182846 (Version 2)
Quarter: 2014Q2

REPORT INFORMATION
  Report Type: Spontaneous
  Country: US (occurrence: US)
  Receive Date: 20140520
  Receipt Date: 20140611
  Transmission Date: 20141212
  Serious: No
  Sender: FDA-Public Use
  Company Number: US-PFIZER INC-2014133784

PATIENT
  Age: 85 Year
  Sex: Male

DRUGS (9)
  1. SUTENT [Suspect]
     Dosage: 50 MG, CYCLIC (DAILY X 14 DAYS)
     Route: 048
     Dates: start: 20140419
  2. LASIX [Concomitant]
     Dosage: UNK
  3. VITAMIN B1 [Concomitant]
     Dosage: UNK
  4. FOLIC ACID [Concomitant]
     Dosage: UNK
  5. ENALAPRIL [Concomitant]
     Dosage: UNK
  6. ESCITALOPRAM [Concomitant]
     Dosage: UNK
  7. WARFARIN [Concomitant]
     Dosage: UNK
  8. IRON [Concomitant]
     Indication: SUPPLEMENTATION THERAPY
     Dosage: UNK
  9. VITAMIN B12 [Concomitant]
     Dosage: UNK

REACTIONS (2)
  - Asthenia [Unknown]
  - Depression [Unknown]
